APPROVED DRUG PRODUCT: CARDIZEM
Active Ingredient: DILTIAZEM HYDROCHLORIDE
Strength: 25MG/VIAL **Federal Register determination that product was not discontinued or withdrawn for safety or effectiveness reasons**
Dosage Form/Route: INJECTABLE;INJECTION
Application: N020027 | Product #003
Applicant: BIOVAIL LABORATORIES INTERNATIONAL SRL
Approved: Aug 18, 1995 | RLD: Yes | RS: No | Type: DISCN